FAERS Safety Report 5373310-1 (Version None)
Quarter: 2007Q2

REPORT INFORMATION
  Report Type: 
  Country: None (occurrence: None)
  Receive Date: 20070626
  Receipt Date: 20070626
  Transmission Date: 20071010
  Serious: Yes (Other)
  Sender: FDA-Public Use
  Company Number: None

PATIENT
  Age: 42 Year
  Sex: Male
  Weight: 65.4 kg

DRUGS (1)
  1. CETUXIMAB   2MG/ML    IMCLONE / BMS [Suspect]
     Indication: TONSIL CANCER
     Dosage: 500 MG  WEEKLY  IV DRIP
     Route: 041
     Dates: start: 20060822, end: 20061019

REACTIONS (4)
  - DYSPHAGIA [None]
  - HYPOGEUSIA [None]
  - PHARYNGOLARYNGEAL PAIN [None]
  - RADIATION MUCOSITIS [None]
